FAERS Safety Report 14166156 (Version 1)
Quarter: 2017Q4

REPORT INFORMATION
  Report Type: Spontaneous
  Country: US (occurrence: US)
  Receive Date: 20171106
  Receipt Date: 20171106
  Transmission Date: 20180321
  Serious: Yes (Disabling)
  Sender: FDA-Public Use
  Company Number: None

PATIENT
  Sex: Male
  Weight: 90 kg

DRUGS (2)
  1. LEVOFLOXACIN 750 MG [Suspect]
     Active Substance: LEVOFLOXACIN
     Indication: COUGH
     Dosage: ?          QUANTITY:21 TABLET(S);?
     Route: 048
     Dates: start: 20171003, end: 20171024
  2. LEVOFLOXACIN 750 MG [Suspect]
     Active Substance: LEVOFLOXACIN
     Indication: SINUSITIS
     Dosage: ?          QUANTITY:21 TABLET(S);?
     Route: 048
     Dates: start: 20171003, end: 20171024

REACTIONS (2)
  - Back pain [None]
  - Arthralgia [None]

NARRATIVE: CASE EVENT DATE: 20171003
